FAERS Safety Report 8829755 (Version 1)
Quarter: 2012Q4

REPORT INFORMATION
  Report Type: Report from Study
  Country: US (occurrence: US)
  Receive Date: 20121008
  Receipt Date: 20121008
  Transmission Date: 20130627
  Serious: Yes (Other)
  Sender: FDA-Public Use
  Company Number: US-ABBOTT-12P-163-0989740-00

PATIENT
  Sex: Female

DRUGS (1)
  1. HUMIRA [Suspect]
     Indication: RHEUMATOID ARTHRITIS
     Route: 058
     Dates: start: 200909

REACTIONS (7)
  - Transient ischaemic attack [Unknown]
  - Migraine [Recovered/Resolved]
  - Balance disorder [Unknown]
  - Speech disorder [Unknown]
  - Eye movement disorder [Unknown]
  - Echocardiogram abnormal [Unknown]
  - Headache [Unknown]
